FAERS Safety Report 7222944-8 (Version None)
Quarter: 2011Q1

REPORT INFORMATION
  Report Type: 
  Country: None (occurrence: None)
  Receive Date: 20110112
  Receipt Date: 20110112
  Transmission Date: 20110831
  Serious: Yes (Life-Threatening)
  Sender: FDA-Public Use
  Company Number: US-ROXANE LABORATORIES, INC.-2011-RO-00059RO

PATIENT
  Sex: Female

DRUGS (2)
  1. METOCLOPRAMIDE [Suspect]
  2. REGLAN [Suspect]

REACTIONS (7)
  - NERVOUS SYSTEM DISORDER [None]
  - TARDIVE DYSKINESIA [None]
  - UNEVALUABLE EVENT [None]
  - DEPRESSION SUICIDAL [None]
  - VISUAL IMPAIRMENT [None]
  - AKATHISIA [None]
  - DYSTONIA [None]
